FAERS Safety Report 20080887 (Version 2)
Quarter: 2021Q4

REPORT INFORMATION
  Report Type: Spontaneous
  Country: US (occurrence: US)
  Receive Date: 20211117
  Receipt Date: 20211215
  Transmission Date: 20220304
  Serious: Yes (Hospitalization, Other)
  Sender: FDA-Public Use
  Company Number: US-009507513-2111USA005108

PATIENT
  Age: 78 Year
  Sex: Female
  Weight: 50.34 kg

DRUGS (11)
  1. ZINPLAVA [Suspect]
     Active Substance: BEZLOTOXUMAB
     Indication: Clostridium difficile infection
     Dosage: ONE DOSE
     Route: 042
     Dates: start: 20211022
  2. TYLENOL [Concomitant]
     Active Substance: ACETAMINOPHEN
     Dosage: 500 MILLIGRAM, PRN
  3. ALBUTEROL [Concomitant]
     Active Substance: ALBUTEROL
     Dosage: INHALER AS NEEDED
  4. ALPRAZOLAM [Concomitant]
     Active Substance: ALPRAZOLAM
     Dosage: 0.25 MILLIGRAM, PRN
  5. ATORVASTATIN [Concomitant]
     Active Substance: ATORVASTATIN
     Dosage: 40 MILLIGRAM, QD
  6. BENZONATATE [Concomitant]
     Active Substance: BENZONATATE
     Indication: Cough
     Dosage: 200 MILLIGRAM, PRN
  7. ELIQUIS [Concomitant]
     Active Substance: APIXABAN
     Dosage: 5MG DAILY
  8. PLAVIX [Concomitant]
     Active Substance: CLOPIDOGREL BISULFATE
     Dosage: 75 MILLIGRAM, QD
  9. GABAPENTIN [Concomitant]
     Active Substance: GABAPENTIN
     Dosage: 350 MILLIGRAM, TID
  10. METOPROLOL [Concomitant]
     Active Substance: METOPROLOL
     Dosage: 100 MILLIGRAM, QD
  11. PACERONE [Concomitant]
     Active Substance: AMIODARONE HYDROCHLORIDE
     Dosage: 200 MILLIGRAM

REACTIONS (3)
  - Cardiac failure congestive [Not Recovered/Not Resolved]
  - Renal failure [Not Recovered/Not Resolved]
  - Probiotic therapy [Unknown]

NARRATIVE: CASE EVENT DATE: 20211101
